FAERS Safety Report 5096357-1 (Version None)
Quarter: 2006Q3

REPORT INFORMATION
  Report Type: 
  Country: None (occurrence: None)
  Receive Date: 20060830
  Receipt Date: 20060814
  Transmission Date: 20061208
  Serious: Yes (Life-Threatening, Hospitalization)
  Sender: FDA-Public Use
  Company Number: 2006RR-03431

PATIENT
  Age: 73 Year
  Sex: Female

DRUGS (9)
  1. METFORMIN HCL [Suspect]
     Indication: DIABETES MELLITUS
     Dosage: 500 MG, 5 DF/DAY, ORAL
     Route: 048
     Dates: end: 20060705
  2. PERINDOPRIL ERBUMINE [Suspect]
     Dosage: 2 MG, QD, ORAL
     Route: 048
     Dates: end: 20060705
  3. ASPIRIN [Concomitant]
  4. ATORVASTATIN CALCIUM [Concomitant]
  5. CALCICHEW D3 [Concomitant]
  6. DILTIAZEM HCL [Concomitant]
  7. GLICLAZIDE [Concomitant]
  8. ISMN [Concomitant]
  9. PERSANTINE [Concomitant]

REACTIONS (4)
  - DEHYDRATION [None]
  - DIARRHOEA [None]
  - RENAL FAILURE ACUTE [None]
  - VOMITING [None]
